FAERS Safety Report 7042602-2 (Version None)
Quarter: 2010Q4

REPORT INFORMATION
  Report Type: 
  Country: None (occurrence: None)
  Receive Date: 20101013
  Receipt Date: 20101006
  Transmission Date: 20110411
  Serious: Yes (Hospitalization)
  Sender: FDA-Public Use
  Company Number: IT-TEVA-250831ISR

PATIENT
  Sex: Female

DRUGS (1)
  1. FENOFIBRATE [Suspect]

REACTIONS (1)
  - RENAL FAILURE [None]
